FAERS Safety Report 5531326-6 (Version None)
Quarter: 2007Q4

REPORT INFORMATION
  Report Type: 
  Country: None (occurrence: None)
  Receive Date: 20071128
  Receipt Date: 20071119
  Transmission Date: 20080405
  Serious: Yes (Other)
  Sender: FDA-Public Use
  Company Number: CHNY2007BR03852

PATIENT
  Age: 71 Year
  Sex: Female

DRUGS (3)
  1. BENEFIBER (NCH)(GUAR GUM) POWDER [Suspect]
     Indication: CONSTIPATION
     Dosage: 1 DF, QD, ORAL
     Route: 048
  2. MODURETIC 5-50 [Concomitant]
  3. VENOCUR TRIPLEX (AESCULUS HIPPOCASTANUM SEED, MIROTON, RUTOSIDE) [Concomitant]

REACTIONS (7)
  - CLAVICLE FRACTURE [None]
  - COLD SWEAT [None]
  - DIZZINESS [None]
  - FEELING ABNORMAL [None]
  - PHARMACEUTICAL PRODUCT COMPLAINT [None]
  - RETCHING [None]
  - UPPER LIMB FRACTURE [None]
